FAERS Safety Report 5683147-1 (Version None)
Quarter: 2008Q1

REPORT INFORMATION
  Report Type: 
  Country: None (occurrence: None)
  Receive Date: 20080327
  Receipt Date: 20080319
  Transmission Date: 20080703
  Serious: Yes (Hospitalization)
  Sender: FDA-Public Use
  Company Number: US-AMGEN-QUU270328

PATIENT
  Sex: Male

DRUGS (15)
  1. EPOGEN [Suspect]
     Indication: DIALYSIS
     Route: 042
  2. VENOFER [Concomitant]
  3. KEPPRA [Concomitant]
  4. LOPRESSOR [Concomitant]
  5. AVANDIA [Concomitant]
  6. COZAAR [Concomitant]
  7. DIFLUCAN [Concomitant]
  8. LASIX [Concomitant]
  9. RENAGEL [Concomitant]
  10. LEXAPRO [Concomitant]
  11. APRESOLINE [Concomitant]
  12. MINOXIDIL [Concomitant]
  13. ASPIRIN [Concomitant]
  14. COLACE [Concomitant]
  15. IMDUR [Concomitant]

REACTIONS (1)
  - PYREXIA [None]
